FAERS Safety Report 5067468-1 (Version None)
Quarter: 2006Q3

REPORT INFORMATION
  Report Type: 
  Country: None (occurrence: None)
  Receive Date: 20060727
  Receipt Date: 20060718
  Transmission Date: 20061208
  Serious: Yes (Hospitalization)
  Sender: FDA-Public Use
  Company Number: 2006089714

PATIENT
  Age: 70 Year
  Sex: Female

DRUGS (3)
  1. AZULFIDINE EN-TABS [Suspect]
     Indication: RHEUMATOID ARTHRITIS
     Dosage: 1 GRAM, DAILY, ORAL
     Route: 048
     Dates: start: 20060614, end: 20060619
  2. XYLOCAINE [Suspect]
     Indication: DRUG USE FOR UNKNOWN INDICATION
     Dates: start: 20060601
  3. PREDNISOLONE [Concomitant]

REACTIONS (3)
  - ANOREXIA [None]
  - INTERSTITIAL LUNG DISEASE [None]
  - RASH GENERALISED [None]
